FAERS Safety Report 19811743 (Version 2)
Quarter: 2023Q2

REPORT INFORMATION
  Report Type: Spontaneous
  Country: NL (occurrence: NL)
  Receive Date: 20210910
  Receipt Date: 20230629
  Transmission Date: 20230722
  Serious: Yes (Other)
  Sender: FDA-Public Use
  Company Number: NL-CELLTRION INC.-2021NL012113

PATIENT

DRUGS (1)
  1. RITUXIMAB [Suspect]
     Active Substance: RITUXIMAB
     Indication: Nephrotic syndrome
     Dosage: 375 MG/M2, CYCLIC (ONE CYCLE CONSISTED OF 2 INFUSIONS WITH 7-14 DAYS INTERVAL)
     Route: 041

REACTIONS (3)
  - Infusion related reaction [Unknown]
  - Off label use [Unknown]
  - Product use issue [Unknown]
